FAERS Safety Report 5241942-7 (Version None)
Quarter: 2007Q1

REPORT INFORMATION
  Report Type: 
  Country: None (occurrence: None)
  Receive Date: 20070220
  Receipt Date: 20070214
  Transmission Date: 20070707
  Serious: Yes (Other)
  Sender: FDA-Public Use
  Company Number: JP-BOEHRINGER INGELHEIM PHARMACEUTICALS, INC.-2007-BP-01835NB

PATIENT
  Age: 54 Year
  Sex: Female

DRUGS (3)
  1. MICARDIS [Suspect]
     Indication: HYPERTENSION
     Route: 048
  2. NORVASC [Concomitant]
     Route: 048
  3. MEVALOTIN [Concomitant]
     Route: 048

REACTIONS (1)
  - CEREBRAL INFARCTION [None]
